FAERS Safety Report 6106866-1 (Version None)
Quarter: 2009Q1

REPORT INFORMATION
  Report Type: 
  Country: None (occurrence: None)
  Receive Date: 20090303
  Receipt Date: 20090225
  Transmission Date: 20090719
  Serious: Yes (Other)
  Sender: FDA-Public Use
  Company Number: GXKR2009DE02362

PATIENT
  Age: 61 Year
  Sex: Female

DRUGS (1)
  1. SIMVAHEXAL       (SIMVASTATIN) FILM-COATED TABLET [Suspect]
     Dosage: 40 MG, ORAL
     Route: 048

REACTIONS (3)
  - ABDOMINAL PAIN [None]
  - NAUSEA [None]
  - SYNCOPE [None]
